FAERS Safety Report 10699175 (Version 5)
Quarter: 2015Q2

REPORT INFORMATION
  Report Type: Spontaneous
  Country: US (occurrence: US)
  Receive Date: 20150108
  Receipt Date: 20150521
  Transmission Date: 20150821
  Serious: Yes (Hospitalization, Other)
  Sender: FDA-Public Use
  Company Number: US-BAUSCH-BL-2014-011442

PATIENT
  Age: 49 Year
  Sex: Female

DRUGS (11)
  1. NUEDEXTA [Suspect]
     Active Substance: DEXTROMETHORPHAN HYDROBROMIDE\QUINIDINE SULFATE
     Indication: ANGER
     Route: 065
     Dates: start: 201501
  2. XENAZINE [Suspect]
     Active Substance: TETRABENAZINE
     Route: 048
  3. XENAZINE [Suspect]
     Active Substance: TETRABENAZINE
     Indication: HUNTINGTON^S DISEASE
     Route: 048
     Dates: start: 20141217
  4. WELLBUTRIN [Suspect]
     Active Substance: BUPROPION HYDROCHLORIDE
     Indication: PRODUCT USED FOR UNKNOWN INDICATION
     Route: 065
  5. CYMBALTA [Concomitant]
     Active Substance: DULOXETINE HYDROCHLORIDE
     Indication: PRODUCT USED FOR UNKNOWN INDICATION
  6. XENAZINE [Suspect]
     Active Substance: TETRABENAZINE
     Route: 048
     Dates: start: 20140204
  7. LYRICA [Suspect]
     Active Substance: PREGABALIN
     Indication: PRODUCT USED FOR UNKNOWN INDICATION
     Route: 065
  8. XENAZINE [Suspect]
     Active Substance: TETRABENAZINE
     Dosage: 25MG IN THE MORNING, 25MG AT 4PM, AND 50MG AT BEDTIME
     Route: 048
     Dates: start: 20141217
  9. CELEXA [Concomitant]
     Active Substance: CITALOPRAM HYDROBROMIDE
     Indication: PRODUCT USED FOR UNKNOWN INDICATION
  10. NEXIUM [Suspect]
     Active Substance: ESOMEPRAZOLE MAGNESIUM
     Indication: PRODUCT USED FOR UNKNOWN INDICATION
     Route: 065
  11. ALLEGRA [Suspect]
     Active Substance: FEXOFENADINE HYDROCHLORIDE
     Indication: PRODUCT USED FOR UNKNOWN INDICATION
     Route: 065

REACTIONS (11)
  - Suicidal ideation [Unknown]
  - Incorrect dose administered [Unknown]
  - Seizure [Unknown]
  - Depression [Unknown]
  - Abnormal behaviour [Recovering/Resolving]
  - Nausea [Recovered/Resolved]
  - Drug dose omission [Unknown]
  - Anger [Recovering/Resolving]
  - Dizziness [Unknown]
  - Somnolence [Not Recovered/Not Resolved]
  - Fine motor delay [Not Recovered/Not Resolved]

NARRATIVE: CASE EVENT DATE: 201412
